FAERS Safety Report 12735205 (Version 3)
Quarter: 2016Q4

REPORT INFORMATION
  Report Type: Spontaneous
  Country: JP (occurrence: JP)
  Receive Date: 20160913
  Receipt Date: 20161007
  Transmission Date: 20170207
  Serious: Yes (Other)
  Sender: FDA-Public Use
  Company Number: JP-009507513-1609JPN003586

PATIENT
  Age: 84 Year
  Sex: Male

DRUGS (6)
  1. REBETOL [Suspect]
     Active Substance: RIBAVIRIN
     Indication: CHRONIC HEPATITIS C
     Dosage: DAILY DOSAGE UNKNOWN
     Route: 048
     Dates: start: 20160805, end: 20160831
  2. GLYCYRON [Concomitant]
     Active Substance: AMMONIUM GLYCYRRHIZATE\GLYCINE\METHIONINE
     Dosage: DAILY DOSAGE UNKNOWN, FORMULATION: POR
     Route: 048
  3. SOVALDI [Suspect]
     Active Substance: SOFOSBUVIR
     Indication: CHRONIC HEPATITIS C
     Dosage: DIVIDED DOSE FREQUENCY UNKNOWN
     Route: 048
     Dates: start: 20160805, end: 20160831
  4. AMLODIPINE BESYLATE. [Concomitant]
     Active Substance: AMLODIPINE BESYLATE
     Dosage: DAILY DOSAGE UNKNOWN, FORMULATION: POR
     Route: 048
  5. URSO [Concomitant]
     Active Substance: URSODIOL
     Dosage: DAILY DOSAGE UNKNOWN, FORMULATION: POR
     Route: 048
  6. PRAVASTATIN SODIUM. [Concomitant]
     Active Substance: PRAVASTATIN SODIUM
     Dosage: DAILY DOSAGE UNKNOWN, FORMULATION: POR
     Route: 048

REACTIONS (1)
  - Renal impairment [Recovered/Resolved]
